FAERS Safety Report 17724511 (Version 2)
Quarter: 2020Q2

REPORT INFORMATION
  Report Type: Report from Study
  Country: KR (occurrence: KR)
  Receive Date: 20200429
  Receipt Date: 20200505
  Transmission Date: 20200714
  Serious: Yes (Hospitalization)
  Sender: FDA-Public Use
  Company Number: KR-TAKEDA-2020TUS020076

PATIENT
  Age: 64 Year
  Sex: Female

DRUGS (7)
  1. VEDOLIZUMAB [Suspect]
     Active Substance: VEDOLIZUMAB
     Indication: CROHN^S DISEASE
     Dosage: 300 MILLIGRAM, Q2WEEKS
     Route: 065
     Dates: start: 20171213
  2. ACETYLSALICYLIC ACID [Concomitant]
     Active Substance: ASPIRIN
     Indication: ACUTE MYOCARDIAL INFARCTION
     Dosage: 1 MILLIGRAM, QD
     Dates: start: 20170506
  3. LEVOFLOXACIN. [Concomitant]
     Active Substance: LEVOFLOXACIN
     Indication: PNEUMONIA
     Dosage: 750 MILLIGRAM, QD
     Dates: start: 20171218, end: 20171221
  4. PIPERACILLIN AND TAZOBACTAM [Concomitant]
     Active Substance: PIPERACILLIN SODIUM\TAZOBACTAM SODIUM
     Indication: OESOPHAGEAL ULCER
     Dosage: 4.5 GRAM, QD
     Dates: start: 20171214, end: 20171221
  5. CLOPIDOGREL [Concomitant]
     Active Substance: CLOPIDOGREL BISULFATE
     Indication: ACUTE MYOCARDIAL INFARCTION
     Dosage: 75 MILLIGRAM, QD
     Dates: start: 20170506, end: 20171208
  6. INFLIXIMAB [Suspect]
     Active Substance: INFLIXIMAB
     Indication: CROHN^S DISEASE
     Dosage: 400 MILLIGRAM, Q8WEEKS
     Route: 065
     Dates: start: 20160714, end: 20171209
  7. HYDROCORTISONE. [Concomitant]
     Active Substance: HYDROCORTISONE
     Indication: CROHN^S DISEASE
     Dosage: 100 MILLIGRAM, QD
     Dates: start: 20171214, end: 20171217

REACTIONS (7)
  - Melaena [Recovered/Resolved]
  - Dizziness [Recovered/Resolved]
  - Oesophageal ulcer [Recovering/Resolving]
  - Anaemia [Recovered/Resolved]
  - Pneumonia [Recovered/Resolved]
  - Crohn^s disease [Recovering/Resolving]
  - Asthenia [Recovered/Resolved]

NARRATIVE: CASE EVENT DATE: 20171205
